FAERS Safety Report 6459939-8 (Version None)
Quarter: 2009Q4

REPORT INFORMATION
  Report Type: 
  Country: None (occurrence: None)
  Receive Date: 20091129
  Receipt Date: 20091116
  Transmission Date: 20100525
  Serious: Yes (Other)
  Sender: FDA-Public Use
  Company Number: PHEH2009US16007

PATIENT
  Sex: Female

DRUGS (2)
  1. GENTEAL GEL (NVO) [Suspect]
     Dosage: UNK, IN THE NIGHTTIME
     Route: 065
  2. GENTEAL (NVO) [Suspect]
     Dosage: UNK, EVERY 4 HOURS
     Route: 065

REACTIONS (6)
  - CATARACT [None]
  - CATARACT OPERATION [None]
  - DRY MOUTH [None]
  - EYE IRRITATION [None]
  - TOOTHACHE [None]
  - VISION BLURRED [None]
